FAERS Safety Report 7284265-7 (Version None)
Quarter: 2011Q1

REPORT INFORMATION
  Report Type: 
  Country: None (occurrence: None)
  Receive Date: 20110209
  Receipt Date: 20110202
  Transmission Date: 20110831
  Serious: Yes (Death)
  Sender: FDA-Public Use
  Company Number: VE-PFIZER INC-2011024688

PATIENT
  Age: 77 Year
  Sex: Male

DRUGS (3)
  1. PLAVIX [Concomitant]
     Dosage: UNK
  2. LIPITOR [Suspect]
     Dosage: 40 MG, 1X/DAY
     Route: 048
     Dates: start: 20070101, end: 20101201
  3. VASTAREL [Concomitant]

REACTIONS (1)
  - LUNG NEOPLASM MALIGNANT [None]
